FAERS Safety Report 15823423 (Version 1)
Quarter: 2019Q1

REPORT INFORMATION
  Report Type: Spontaneous
  Country: US (occurrence: US)
  Receive Date: 20190114
  Receipt Date: 20190114
  Transmission Date: 20190417
  Serious: No
  Sender: FDA-Public Use
  Company Number: US-SHIONOGI, INC-2018001814

PATIENT
  Sex: Female

DRUGS (4)
  1. SYMPROIC [Suspect]
     Active Substance: NALDEMEDINE
     Indication: CONSTIPATION
     Dosage: 1 DF, QD
     Route: 065
  2. SYMPROIC [Suspect]
     Active Substance: NALDEMEDINE
     Dosage: 2 DF, QD
     Route: 065
  3. SYMPROIC [Suspect]
     Active Substance: NALDEMEDINE
     Dosage: 2 DF, QOD
     Route: 065
  4. NORCO [Concomitant]
     Active Substance: ACETAMINOPHEN\HYDROCODONE BITARTRATE
     Indication: PRODUCT USED FOR UNKNOWN INDICATION
     Dosage: UNK
     Route: 065

REACTIONS (4)
  - Inappropriate schedule of product administration [Unknown]
  - Drug ineffective [Unknown]
  - Intentional overdose [Unknown]
  - Faeces hard [Unknown]
